FAERS Safety Report 6084312-4 (Version None)
Quarter: 2009Q1

REPORT INFORMATION
  Report Type: 
  Country: None (occurrence: None)
  Receive Date: 20090217
  Receipt Date: 20090209
  Transmission Date: 20090719
  Serious: Yes (Hospitalization)
  Sender: FDA-Public Use
  Company Number: T07-SWE-03572-01

PATIENT
  Age: 67 Year
  Sex: Female
  Weight: 71.7 kg

DRUGS (8)
  1. SAVELLA [Suspect]
     Indication: FIBROMYALGIA
     Dosage: 200 MG (1 IN 1 D), ORAL; 1 IN 1 D, ORAL; 1 IN 1 D, ORAL
     Route: 048
     Dates: start: 20070806, end: 20070811
  2. SAVELLA [Suspect]
     Indication: FIBROMYALGIA
     Dosage: 200 MG (1 IN 1 D), ORAL; 1 IN 1 D, ORAL; 1 IN 1 D, ORAL
     Route: 048
     Dates: start: 20070702
  3. SAVELLA [Suspect]
     Indication: FIBROMYALGIA
     Dosage: 200 MG (1 IN 1 D), ORAL; 1 IN 1 D, ORAL; 1 IN 1 D, ORAL
     Route: 048
     Dates: start: 20070730
  4. OMEPRAZOLE [Concomitant]
  5. NSAIDS [Concomitant]
  6. FENYLPROPANDIUM [Concomitant]
  7. ESTRADIOL [Concomitant]
  8. MACROGOL [Concomitant]

REACTIONS (8)
  - AORTIC DISSECTION [None]
  - BLOOD PRESSURE SYSTOLIC INCREASED [None]
  - BRADYCARDIA [None]
  - CHEST PAIN [None]
  - CONSTIPATION [None]
  - FATIGUE [None]
  - HAEMATOMA [None]
  - URETHRITIS [None]
